FAERS Safety Report 5369029-3 (Version None)
Quarter: 2007Q2

REPORT INFORMATION
  Report Type: 
  Country: None (occurrence: None)
  Receive Date: 20070625
  Receipt Date: 20061206
  Transmission Date: 20071010
  Serious: No
  Sender: FDA-Public Use
  Company Number: US-ASTRAZENECA-2006UW27119

PATIENT
  Age: 73 Year
  Sex: Female
  Weight: 86.2 kg

DRUGS (3)
  1. CRESTOR [Suspect]
     Indication: BLOOD CHOLESTEROL INCREASED
     Route: 048
  2. NORVASC [Concomitant]
  3. FUROSEMIDE [Concomitant]

REACTIONS (1)
  - BLOOD URINE PRESENT [None]
